FAERS Safety Report 4547088-5 (Version None)
Quarter: 2005Q1

REPORT INFORMATION
  Report Type: 
  Country: None (occurrence: None)
  Receive Date: 20050105
  Receipt Date: 20041223
  Transmission Date: 20050727
  Serious: Yes (Death)
  Sender: FDA-Public Use
  Company Number: 2004US001547

PATIENT
  Age: 50 Year
  Sex: Male
  Weight: 45.8 kg

DRUGS (8)
  1. PROGRAF [Suspect]
     Indication: PROPHYLAXIS AGAINST TRANSPLANT REJECTION
     Dosage: 4.00 MG, BID, ORAL
     Route: 048
     Dates: start: 20020529
  2. PREDNISONE [Suspect]
     Indication: PROPHYLAXIS AGAINST TRANSPLANT REJECTION
     Dosage: 1.00 DF, UID/QD, ORAL
     Route: 048
     Dates: start: 20021124, end: 20040716
  3. PREDNISONE [Suspect]
     Indication: PROPHYLAXIS AGAINST TRANSPLANT REJECTION
     Dosage: 10.00 MG, UID/QD, ORAL
     Route: 048
     Dates: start: 20020527
  4. CELLCEPT [Suspect]
     Indication: PROPHYLAXIS AGAINST TRANSPLANT REJECTION
     Dosage: 1.00 G, BID, ORAL
     Route: 048
     Dates: start: 20020527
  5. TRIMETOPRIM-SULFA (SULFAMETHOXAZOLE, TRIMETHOPRIM) [Concomitant]
  6. METOPROLOL (METOPROLOL0 [Concomitant]
  7. ATORVASTATIN (ATORVASTATIN) [Concomitant]
  8. ASPIRIN [Concomitant]

REACTIONS (10)
  - BRAIN DEATH [None]
  - CEREBRAL HAEMORRHAGE [None]
  - CYTOMEGALOVIRUS INFECTION [None]
  - DEPRESSED LEVEL OF CONSCIOUSNESS [None]
  - HAEMATEMESIS [None]
  - IDIOPATHIC THROMBOCYTOPENIC PURPURA [None]
  - PANCREATITIS [None]
  - PETECHIAE [None]
  - THROMBOCYTOPENIA [None]
  - TRANSPLANT REJECTION [None]
